FAERS Safety Report 5872456-9 (Version None)
Quarter: 2008Q3

REPORT INFORMATION
  Report Type: 
  Country: None (occurrence: None)
  Receive Date: 20080905
  Receipt Date: 20080828
  Transmission Date: 20090109
  Serious: Yes (Hospitalization, Other)
  Sender: FDA-Public Use
  Company Number: PHFR2008IE01069

PATIENT
  Sex: Male

DRUGS (2)
  1. CLOZARIL [Suspect]
     Indication: SCHIZOPHRENIA
     Dosage: 350 MG DAILY
     Route: 048
     Dates: start: 19940901
  2. CITALOPRAM HYDROBROMIDE [Concomitant]
     Indication: DEPRESSED MOOD
     Dosage: 40 MG DAILY

REACTIONS (6)
  - COMBINED IMMUNODEFICIENCY [None]
  - HEADACHE [None]
  - HYPOGAMMAGLOBULINAEMIA [None]
  - LEUKOPENIA [None]
  - LOWER RESPIRATORY TRACT INFECTION [None]
  - NEUTROPENIA [None]
